FAERS Safety Report 8934640 (Version 1)
Quarter: 2012Q4

REPORT INFORMATION
  Report Type: 
  Country: US (occurrence: US)
  Receive Date: 20121129
  Receipt Date: 20121129
  Transmission Date: 20130627
  Serious: Yes (Other)
  Sender: FDA-Public Use
  Company Number: US-BAYER-2012-123786

PATIENT
  Age: 23 Year
  Sex: Female
  Weight: 66 kg

DRUGS (2)
  1. BEYAZ [Suspect]
     Indication: CONTRACEPTION
     Dosage: UNK
     Dates: start: 20121013
  2. PLAN B [Suspect]
     Indication: POST COITAL CONTRACEPTION
     Dosage: 1.5 mg, ONCE
     Route: 048
     Dates: start: 20121013, end: 20121013

REACTIONS (2)
  - Vaginal haemorrhage [Recovered/Resolved]
  - Abdominal pain lower [None]
